FAERS Safety Report 15868401 (Version 1)
Quarter: 2019Q1

REPORT INFORMATION
  Report Type: Spontaneous
  Country: US (occurrence: US)
  Receive Date: 20190125
  Receipt Date: 20190125
  Transmission Date: 20190417
  Serious: No
  Sender: FDA-Public Use
  Company Number: None

PATIENT
  Sex: Female

DRUGS (2)
  1. ARICEPT [Suspect]
     Active Substance: DONEPEZIL HYDROCHLORIDE
  2. EXELON PATCH [Suspect]
     Active Substance: RIVASTIGMINE

REACTIONS (4)
  - Application site scar [None]
  - Application site rash [None]
  - Diarrhoea [None]
  - Vomiting [None]
